FAERS Safety Report 20234178 (Version 1)
Quarter: 2021Q4

REPORT INFORMATION
  Report Type: Spontaneous
  Country: US (occurrence: US)
  Receive Date: 20211227
  Receipt Date: 20211227
  Transmission Date: 20220303
  Serious: No
  Sender: FDA-Public Use
  Company Number: US-FOUNDATIONCONSUMERHC-2021-US-016316

PATIENT
  Age: 43 Year
  Sex: Female
  Weight: 49.9 kg

DRUGS (2)
  1. PLAN B ONE-STEP [Suspect]
     Active Substance: LEVONORGESTREL
     Indication: Post coital contraception
     Dosage: TIMES 2 DOSES
     Route: 048
     Dates: start: 20210713, end: 20210718
  2. BIOTIN [Concomitant]
     Active Substance: BIOTIN

REACTIONS (6)
  - Agitation [Recovered/Resolved]
  - Dizziness [Recovered/Resolved]
  - Vaginal discharge [Recovering/Resolving]
  - Vaginal haemorrhage [Recovering/Resolving]
  - Dysmenorrhoea [Recovered/Resolved]
  - Hot flush [Recovered/Resolved]

NARRATIVE: CASE EVENT DATE: 20210717
